FAERS Safety Report 5092271-6 (Version None)
Quarter: 2006Q3

REPORT INFORMATION
  Report Type: 
  Country: None (occurrence: None)
  Receive Date: 20060825
  Receipt Date: 20060809
  Transmission Date: 20061208
  Serious: Yes (Hospitalization)
  Sender: FDA-Public Use
  Company Number: US200608002041

PATIENT
  Age: 11 Year
  Sex: Female

DRUGS (4)
  1. HUMATROPE [Suspect]
     Indication: BODY HEIGHT
     Dates: start: 20030101, end: 20051210
  2. HUMATROPE [Suspect]
     Indication: BODY HEIGHT
     Dates: start: 20060101, end: 20060309
  3. HUMATROPE [Suspect]
     Indication: BODY HEIGHT
     Dates: start: 20060415
  4. HUMATROPE (HUMATROPEN) PEN, REUSABLE [Concomitant]

REACTIONS (3)
  - MEDICAL DEVICE COMPLICATION [None]
  - PHARMACEUTICAL PRODUCT COMPLAINT [None]
  - SKIN ULCER [None]
